FAERS Safety Report 15793939 (Version 1)
Quarter: 2019Q1

REPORT INFORMATION
  Report Type: Spontaneous
  Country: US (occurrence: US)
  Receive Date: 20190107
  Receipt Date: 20190107
  Transmission Date: 20190417
  Serious: Yes (Other)
  Sender: FDA-Public Use
  Company Number: US-PFIZER INC-2019002103

PATIENT
  Age: 61 Year
  Sex: Female

DRUGS (1)
  1. XELJANZ XR [Suspect]
     Active Substance: TOFACITINIB CITRATE
     Indication: RHEUMATOID ARTHRITIS
     Dosage: 11 MG, 1X/DAY
     Route: 048
     Dates: start: 201810

REACTIONS (5)
  - Hypoaesthesia [Recovering/Resolving]
  - Memory impairment [Recovered/Resolved]
  - Condition aggravated [Recovering/Resolving]
  - Paraesthesia [Recovering/Resolving]
  - Neuralgia [Recovering/Resolving]

NARRATIVE: CASE EVENT DATE: 20181101
